FAERS Safety Report 4899713-7 (Version None)
Quarter: 2006Q1

REPORT INFORMATION
  Report Type: 
  Country: None (occurrence: None)
  Receive Date: 20060131
  Receipt Date: 20060126
  Transmission Date: 20060701
  Serious: Yes (Death)
  Sender: FDA-Public Use
  Company Number: TPA2005A01693

PATIENT
  Age: 68 Year
  Sex: Male
  Weight: 110.5 kg

DRUGS (2)
  1. PIOGLITAZONE HCL [Suspect]
     Indication: GLUCOSE TOLERANCE IMPAIRED
     Dosage: 30 MG, 1 IN 1 D; PER ORAL, 45 MG, 1 IN 1 D, PER ORAL
     Route: 048
     Dates: start: 20041119, end: 20041220
  2. PIOGLITAZONE HCL [Suspect]
     Indication: GLUCOSE TOLERANCE IMPAIRED
     Dosage: 30 MG, 1 IN 1 D; PER ORAL, 45 MG, 1 IN 1 D, PER ORAL
     Route: 048
     Dates: start: 20041221, end: 20051124

REACTIONS (11)
  - ADENOCARCINOMA PANCREAS [None]
  - BILE DUCT CANCER [None]
  - BILIARY NEOPLASM [None]
  - BLOOD ALBUMIN INCREASED [None]
  - BLOOD GLUCOSE INCREASED [None]
  - CHOLELITHIASIS [None]
  - GASTRIC CANCER [None]
  - HEPATIC MASS [None]
  - HEPATITIS [None]
  - HEPATOMEGALY [None]
  - SPLENOMEGALY [None]
